FAERS Safety Report 8114807-0 (Version None)
Quarter: 2012Q1

REPORT INFORMATION
  Report Type: 
  Country: None (occurrence: None)
  Receive Date: 20120206
  Receipt Date: 20120203
  Transmission Date: 20120608
  Serious: Yes (Death)
  Sender: FDA-Public Use
  Company Number: PHFR2012GB000492

PATIENT
  Sex: Male

DRUGS (5)
  1. CLOZARIL [Suspect]
     Dosage: 450 MG,
     Route: 048
     Dates: start: 20111028
  2. MOVIPREP [Concomitant]
     Indication: CONSTIPATION
     Dosage: 1 DF, UNK
     Route: 048
     Dates: start: 20111028
  3. NIFEDIPINE [Concomitant]
     Indication: RAYNAUD'S PHENOMENON
     Dosage: 60 MG
     Route: 048
     Dates: start: 20111028
  4. CLOZARIL [Suspect]
     Indication: SCHIZOPHRENIA
     Dates: start: 20100122
  5. LORAZEPAM [Concomitant]
     Indication: ANXIETY
     Dosage: 1 MG
     Route: 048
     Dates: start: 20111028

REACTIONS (2)
  - COMPLETED SUICIDE [None]
  - BLOOD ALBUMIN INCREASED [None]
